FAERS Safety Report 7484958-2 (Version None)
Quarter: 2011Q2

REPORT INFORMATION
  Report Type: 
  Country: None (occurrence: None)
  Receive Date: 20110517
  Receipt Date: 20101004
  Transmission Date: 20111010
  Serious: No
  Sender: FDA-Public Use
  Company Number: US-BAYER-201022185BCC

PATIENT
  Age: 70 Year
  Sex: Male
  Weight: 88.636 kg

DRUGS (3)
  1. MEVACOR [Concomitant]
  2. NAPROXEN (ALEVE) [Suspect]
     Dosage: 1 DF, UNK
     Route: 048
     Dates: start: 20100927, end: 20101001
  3. NAPROXEN (ALEVE) [Suspect]
     Indication: BACK PAIN
     Dosage: 3 DF, 2 IN THE MORNING ONE 12HOURS LATE
     Route: 048
     Dates: start: 20100926, end: 20100926

REACTIONS (1)
  - OEDEMA PERIPHERAL [None]
